FAERS Safety Report 21998734 (Version 1)
Quarter: 2023Q1

REPORT INFORMATION
  Report Type: Report from Study
  Country: CA (occurrence: CA)
  Receive Date: 20230216
  Receipt Date: 20230216
  Transmission Date: 20230418
  Serious: Yes (Other)
  Sender: FDA-Public Use
  Company Number: CA-OTSUKA-2023_000567

PATIENT
  Sex: Male

DRUGS (1)
  1. CEDAZURIDINE\DECITABINE [Suspect]
     Active Substance: CEDAZURIDINE\DECITABINE
     Indication: Chronic myelomonocytic leukaemia
     Dosage: UNK, EVERY 5 WEEKS
     Route: 065
     Dates: start: 20220928

REACTIONS (4)
  - Transfusion [Unknown]
  - Fatigue [Unknown]
  - Red blood cell count decreased [Unknown]
  - Inappropriate schedule of product administration [Unknown]
